APPROVED DRUG PRODUCT: FLUOROURACIL
Active Ingredient: FLUOROURACIL
Strength: 5%
Dosage Form/Route: CREAM;TOPICAL
Application: A214845 | Product #001 | TE Code: AB
Applicant: ACCORD HEALTHCARE INC
Approved: Oct 7, 2021 | RLD: No | RS: No | Type: RX